FAERS Safety Report 6204320-X (Version None)
Quarter: 2009Q2

REPORT INFORMATION
  Report Type: 
  Country: None (occurrence: None)
  Receive Date: 20090518
  Receipt Date: 20090227
  Transmission Date: 20091009
  Serious: No
  Sender: FDA-Public Use
  Company Number: WAES 0901USA01970

PATIENT
  Age: 57 Year
  Sex: Male

DRUGS (6)
  1. JANUVIA [Suspect]
     Indication: TYPE 2 DIABETES MELLITUS
     Dosage: 100 MG/DAILY/PO
     Route: 048
     Dates: start: 20081001
  2. ATENOLOL [Suspect]
     Indication: BLOOD PRESSURE
     Dosage: 25 MG/AM/
  3. ANTARA (MICRONIZED) [Concomitant]
  4. TEGRETOL [Concomitant]
  5. ASPIRIN [Concomitant]
  6. LAMOTRIGINE [Concomitant]

REACTIONS (2)
  - FEELING COLD [None]
  - PERIPHERAL COLDNESS [None]
